FAERS Safety Report 6882183-7 (Version None)
Quarter: 2010Q3

REPORT INFORMATION
  Report Type: 
  Country: None (occurrence: None)
  Receive Date: 20100729
  Receipt Date: 20100715
  Transmission Date: 20110219
  Serious: Yes (Hospitalization)
  Sender: FDA-Public Use
  Company Number: FR-JNJFOC-20100707793

PATIENT
  Sex: Female

DRUGS (10)
  1. CONTRAMAL [Suspect]
     Indication: PRODUCT USED FOR UNKNOWN INDICATION
     Route: 048
  2. TENSIONORME [Suspect]
     Indication: HYPERTENSION
  3. MYOLASTAN [Concomitant]
     Indication: PRODUCT USED FOR UNKNOWN INDICATION
  4. LEXOMIL [Concomitant]
  5. ZOLPIDEM [Concomitant]
  6. KARDEGIC [Concomitant]
  7. SPASFON [Concomitant]
  8. CORDARONE [Concomitant]
  9. OLMESARTAN MEDOXOMIL [Concomitant]
  10. PENTOXIFYLLINE [Concomitant]

REACTIONS (4)
  - ABDOMINAL PAIN [None]
  - HYPOKALAEMIA [None]
  - HYPONATRAEMIA [None]
  - VOMITING [None]
